FAERS Safety Report 20406613 (Version 2)
Quarter: 2024Q3

REPORT INFORMATION
  Report Type: Report from Study
  Country: BR (occurrence: BR)
  Receive Date: 20220131
  Receipt Date: 20240926
  Transmission Date: 20241017
  Serious: Yes (Other)
  Sender: TAKEDA
  Company Number: BR-TAKEDA-BR202002469

PATIENT
  Age: 28 Year
  Sex: Male
  Weight: 110 kg

DRUGS (3)
  1. ICATIBANT [Suspect]
     Active Substance: ICATIBANT ACETATE
     Indication: Hereditary angioedema
     Dosage: UNK
     Route: 058
  2. ICATIBANT [Suspect]
     Active Substance: ICATIBANT ACETATE
     Indication: Hereditary angioedema
     Dosage: UNK
     Route: 058
  3. DANAZOL [Concomitant]
     Active Substance: DANAZOL
     Dosage: UNK
     Route: 065

REACTIONS (6)
  - COVID-19 [Recovered/Resolved]
  - Expired product administered [Unknown]
  - Arthropathy [Recovered/Resolved]
  - Limb discomfort [Recovered/Resolved]
  - Decreased immune responsiveness [Recovered/Resolved]
  - Product availability issue [Unknown]

NARRATIVE: CASE EVENT DATE: 20200901
